FAERS Safety Report 6179543-9 (Version None)
Quarter: 2009Q2

REPORT INFORMATION
  Report Type: 
  Country: None (occurrence: None)
  Receive Date: 20090501
  Receipt Date: 20090501
  Transmission Date: 20091009
  Serious: Yes (Other)
  Sender: FDA-Public Use
  Company Number: None

PATIENT
  Age: 57 Year
  Sex: Male
  Weight: 104.3273 kg

DRUGS (2)
  1. ISOTRETINOIN [Suspect]
     Indication: FURUNCLE
     Dosage: 40 MG ONE TIME A DAY PO
     Route: 048
     Dates: start: 20090301, end: 20090405
  2. DOXYCYCLINE HYCLATE [Suspect]
     Indication: ACNE CYSTIC
     Dosage: 200 MG 3 IMES A DAY PO
     Route: 048
     Dates: start: 20090401, end: 20090430

REACTIONS (5)
  - BENIGN INTRACRANIAL HYPERTENSION [None]
  - DISCOMFORT [None]
  - ERYTHEMA [None]
  - HEADACHE [None]
  - HOT FLUSH [None]
